FAERS Safety Report 5774330-5 (Version None)
Quarter: 2008Q2

REPORT INFORMATION
  Report Type: 
  Country: None (occurrence: None)
  Receive Date: 20080616
  Receipt Date: 20080608
  Transmission Date: 20081010
  Serious: Yes (Hospitalization, Other)
  Sender: FDA-Public Use
  Company Number: PHHY2008CA10831

PATIENT
  Sex: Female

DRUGS (4)
  1. EXELON [Suspect]
     Indication: DEMENTIA ALZHEIMER'S TYPE
     Dosage: 1.5MG
     Route: 048
     Dates: start: 20010711, end: 20030218
  2. EXELON [Suspect]
     Dosage: 3 MG, BID
     Dates: start: 20060613, end: 20070601
  3. EXELON [Suspect]
     Dosage: 4.5 MG, BID
     Dates: start: 20060901, end: 20061101
  4. ARICEPT [Concomitant]
     Dosage: UNK
     Dates: start: 20030218, end: 20051201

REACTIONS (3)
  - DEMENTIA [None]
  - DRUG INEFFECTIVE [None]
  - VOMITING [None]
